FAERS Safety Report 20428510 (Version 2)
Quarter: 2022Q1

REPORT INFORMATION
  Report Type: Report from Study
  Country: BR (occurrence: BR)
  Receive Date: 20220204
  Receipt Date: 20220218
  Transmission Date: 20220424
  Serious: Yes (Hospitalization, Other)
  Sender: FDA-Public Use
  Company Number: BR-TAKEDA-2021TUS082894

PATIENT
  Age: 68 Year
  Sex: Female
  Weight: 64 kg

DRUGS (9)
  1. MOBOCERTINIB [Suspect]
     Active Substance: MOBOCERTINIB
     Indication: Lung adenocarcinoma
     Dosage: 180 MILLIGRAM, QD
     Route: 065
     Dates: start: 20211015, end: 20211025
  2. MOBOCERTINIB [Suspect]
     Active Substance: MOBOCERTINIB
     Dosage: 120 MILLIGRAM, QD
     Route: 065
     Dates: start: 20211029
  3. MOBOCERTINIB [Suspect]
     Active Substance: MOBOCERTINIB
     Dosage: 80 MILLIGRAM, QD
     Route: 048
     Dates: start: 20211108
  4. GABAPENTIN [Concomitant]
     Active Substance: GABAPENTIN
     Indication: Pain
     Dosage: 300 MILLIGRAM, Q12H
     Route: 048
     Dates: start: 202108
  5. OMEPRAZOLE [Concomitant]
     Active Substance: OMEPRAZOLE
     Indication: Prophylaxis
     Dosage: 20 MILLIGRAM, QD
     Route: 048
     Dates: start: 202108
  6. LOPERAMIDE [Concomitant]
     Active Substance: LOPERAMIDE
     Indication: Diarrhoea
     Dosage: 2 MILLIGRAM, Q4HR
     Route: 048
     Dates: start: 20211022
  7. METOCLOPRAMIDE [Concomitant]
     Active Substance: METOCLOPRAMIDE
     Indication: Nausea
     Dosage: UNK
     Dates: start: 202108
  8. DIMENHYDRINATE\PYRIDOXINE [Concomitant]
     Active Substance: DIMENHYDRINATE\PYRIDOXINE
     Indication: Nausea
  9. DIMENHYDRINATE\PYRIDOXINE [Concomitant]
     Active Substance: DIMENHYDRINATE\PYRIDOXINE
     Indication: Vomiting

REACTIONS (11)
  - Lung adenocarcinoma [Unknown]
  - Amaurosis [Unknown]
  - Optic nerve injury [Unknown]
  - Abdominal pain [Recovered/Resolved]
  - Diarrhoea [Recovered/Resolved]
  - Vomiting [Recovered/Resolved]
  - Adverse event [Unknown]
  - Disease progression [Unknown]
  - Toxicity to various agents [Unknown]
  - Disease complication [Unknown]
  - Gastrointestinal toxicity [Unknown]

NARRATIVE: CASE EVENT DATE: 20211025
